FAERS Safety Report 14261113 (Version 1)
Quarter: 2017Q4

REPORT INFORMATION
  Report Type: Spontaneous
  Country: US (occurrence: US)
  Receive Date: 20171207
  Receipt Date: 20171207
  Transmission Date: 20180321
  Serious: Yes (Other)
  Sender: FDA-Public Use
  Company Number: None

PATIENT
  Age: 67 Year
  Sex: Male
  Weight: 91.8 kg

DRUGS (7)
  1. CITALOPRAM [Concomitant]
     Active Substance: CITALOPRAM HYDROBROMIDE
  2. BABY ASPIRIN [Concomitant]
     Active Substance: ASPIRIN
  3. FORMULA SF722 [Concomitant]
  4. CENTRUM SILVER [Concomitant]
     Active Substance: MINERALS\VITAMINS
  5. OCUVITE [Concomitant]
     Active Substance: VITAMINS
  6. ATORVASTATIN [Suspect]
     Active Substance: ATORVASTATIN
     Indication: PROPHYLAXIS
     Route: 048
     Dates: start: 20171127, end: 20171201
  7. AMLODIPINE [Concomitant]
     Active Substance: AMLODIPINE BESYLATE

REACTIONS (8)
  - Localised infection [None]
  - Decreased appetite [None]
  - Oral mucosal eruption [None]
  - Joint swelling [None]
  - Erythema [None]
  - Cheilitis [None]
  - Rash generalised [None]
  - Rash [None]

NARRATIVE: CASE EVENT DATE: 20171204
